FAERS Safety Report 5981039-1 (Version None)
Quarter: 2008Q4

REPORT INFORMATION
  Report Type: 
  Country: None (occurrence: None)
  Receive Date: 20081205
  Receipt Date: 20081013
  Transmission Date: 20090506
  Serious: No
  Sender: FDA-Public Use
  Company Number: A0751534A

PATIENT
  Age: 58 Year
  Sex: Female

DRUGS (11)
  1. COMMIT [Suspect]
     Dates: start: 20080828
  2. NICORETTE [Suspect]
  3. NICOTINE [Suspect]
  4. PRILOSEC [Concomitant]
  5. METFORMIN HCL [Concomitant]
  6. GLYSET [Concomitant]
  7. ARTHROTEC [Concomitant]
  8. SKELAXIN [Concomitant]
  9. SONE [Concomitant]
  10. DIOVAN [Concomitant]
  11. UNSPECIFIED MEDICATION [Concomitant]

REACTIONS (3)
  - DRUG INEFFECTIVE [None]
  - DYSPEPSIA [None]
  - INTENTIONAL DRUG MISUSE [None]
